FAERS Safety Report 5924877-3 (Version None)
Quarter: 2008Q4

REPORT INFORMATION
  Report Type: 
  Country: None (occurrence: None)
  Receive Date: 20081017
  Receipt Date: 20081017
  Transmission Date: 20090506
  Serious: Yes (Death)
  Sender: FDA-Public Use
  Company Number: None

PATIENT
  Age: 27 Year
  Sex: Male
  Weight: 108.8633 kg

DRUGS (1)
  1. CHANTIX [Suspect]
     Indication: SMOKING CESSATION THERAPY
     Dosage: STANDARD RECOMMENDED DOSAGE PO
     Route: 048
     Dates: start: 20071111, end: 20080211

REACTIONS (6)
  - AGGRESSION [None]
  - COMPLETED SUICIDE [None]
  - INTENTIONAL OVERDOSE [None]
  - MENTAL DISORDER [None]
  - MOOD SWINGS [None]
  - NERVOUS SYSTEM DISORDER [None]
